FAERS Safety Report 6417555-8 (Version None)
Quarter: 2009Q4

REPORT INFORMATION
  Report Type: 
  Country: None (occurrence: None)
  Receive Date: 20091028
  Receipt Date: 20091023
  Transmission Date: 20100525
  Serious: Yes (Disabling)
  Sender: FDA-Public Use
  Company Number: ZA-ROCHE-662878

PATIENT
  Sex: Male

DRUGS (1)
  1. ROCEPHIN [Suspect]
     Dosage: FORM: BOLUS INJECTION.
     Route: 042

REACTIONS (2)
  - BRAIN INJURY [None]
  - CARDIAC ARREST [None]
